FAERS Safety Report 10089341 (Version 1)
Quarter: 2014Q2

REPORT INFORMATION
  Report Type: Spontaneous
  Country: US (occurrence: ES)
  Receive Date: 20140421
  Receipt Date: 20140421
  Transmission Date: 20141212
  Serious: Yes (Other)
  Sender: FDA-Public Use
  Company Number: 2014SP002208

PATIENT
  Age: 68 Year
  Sex: Female

DRUGS (9)
  1. METHOTREXATE [Suspect]
     Indication: RHEUMATOID ARTHRITIS
     Route: 058
  2. ETANERCEPT [Suspect]
     Indication: RHEUMATOID ARTHRITIS
  3. DACORTIN [Concomitant]
  4. TARDYFERON-FOL [Concomitant]
  5. SEROXAT [Concomitant]
  6. PARACETAMOL [Concomitant]
  7. FOLIC ACID [Concomitant]
  8. IBUPROFENE [Concomitant]
  9. RAMIPRIL BEXAL [Concomitant]

REACTIONS (14)
  - Injection site pain [Unknown]
  - Injection site haematoma [Unknown]
  - Injection site erythema [Unknown]
  - Injection site inflammation [Unknown]
  - Injection site rash [Unknown]
  - Injection site pruritus [Unknown]
  - Injection site warmth [Unknown]
  - Injection site discomfort [Unknown]
  - Leukopenia [Unknown]
  - Nasopharyngitis [Unknown]
  - Pyrexia [Unknown]
  - Cough [Not Recovered/Not Resolved]
  - Chest discomfort [Unknown]
  - Drug ineffective [Unknown]
